FAERS Safety Report 14414108 (Version 4)
Quarter: 2018Q1

REPORT INFORMATION
  Report Type: Report from Study
  Country: RO (occurrence: RO)
  Receive Date: 20180120
  Receipt Date: 20180301
  Transmission Date: 20180509
  Serious: Yes (Life-Threatening, Hospitalization)
  Sender: FDA-Public Use
  Company Number: RO-AMGEN-ROUCT2018003994

PATIENT
  Age: 63 Year
  Sex: Male
  Weight: 54 kg

DRUGS (12)
  1. XEFO [Concomitant]
     Active Substance: LORNOXICAM
     Dosage: 8 MG, UNK
     Dates: start: 201711
  2. FENTANYL. [Concomitant]
     Active Substance: FENTANYL
     Dosage: 100 MG, UNK
     Dates: start: 201710
  3. NACL [Concomitant]
     Active Substance: SODIUM CHLORIDE
     Dosage: 250- 500 ML, UNK
     Dates: start: 20171220
  4. DARATUMUMAB [Suspect]
     Active Substance: DARATUMUMAB
     Indication: PLASMA CELL MYELOMA
     Dosage: 864 MG, PER CHEMO REGIM
     Route: 042
     Dates: start: 20171211
  5. ALGOCALMIN [Concomitant]
     Active Substance: METAMIZOLE SODIUM
     Dosage: 1 UNK, UNK
     Dates: start: 20171101
  6. DEXAMETHASONE. [Concomitant]
     Active Substance: DEXAMETHASONE
     Indication: PLASMA CELL MYELOMA
     Dosage: 20-40 MG, UNK
     Dates: start: 20171211, end: 20180215
  7. CONTROLOC [Concomitant]
     Active Substance: PANTOPRAZOLE SODIUM
     Dosage: 40 MG, UNK
     Dates: start: 201709
  8. SINGULAIR [Concomitant]
     Active Substance: MONTELUKAST SODIUM
     Dosage: 10 MG, UNK
     Route: 048
     Dates: start: 20171208
  9. CLARITINE [Concomitant]
     Active Substance: LORATADINE
     Dosage: 20 MG, UNK
     Route: 048
     Dates: start: 20171219
  10. PARACETAMOL [Concomitant]
     Active Substance: ACETAMINOPHEN
     Dosage: 1000 MG, UNK
     Route: 048
     Dates: start: 20171211
  11. CARFILZOMIB [Suspect]
     Active Substance: CARFILZOMIB
     Indication: PLASMA CELL MYELOMA
     Dosage: 56 MG, PER CHEMO REGIM
     Route: 042
     Dates: start: 20171211
  12. PARACETAMOLUM [Concomitant]
     Active Substance: ACETAMINOPHEN
     Dosage: 1000 MG, UNK
     Route: 048
     Dates: start: 20171212

REACTIONS (2)
  - Haemoglobin abnormal [Recovered/Resolved]
  - Upper gastrointestinal haemorrhage [Recovered/Resolved]

NARRATIVE: CASE EVENT DATE: 20180108
